FAERS Safety Report 19768774 (Version 1)
Quarter: 2021Q3

REPORT INFORMATION
  Report Type: Spontaneous
  Country: JP (occurrence: JP)
  Receive Date: 20210830
  Receipt Date: 20210830
  Transmission Date: 20211014
  Serious: Yes (Other)
  Sender: FDA-Public Use
  Company Number: JP-BRISTOL-MYERS SQUIBB COMPANY-BMS-2021-085624

PATIENT
  Sex: Male

DRUGS (1)
  1. OPDIVO [Suspect]
     Active Substance: NIVOLUMAB
     Indication: GASTRIC CANCER
     Dosage: UNK
     Route: 041

REACTIONS (6)
  - Pruritus [Not Recovered/Not Resolved]
  - Haemorrhage subcutaneous [Not Recovered/Not Resolved]
  - Skin discolouration [Not Recovered/Not Resolved]
  - Leukoderma [Not Recovered/Not Resolved]
  - Rash [Not Recovered/Not Resolved]
  - Nail discolouration [Not Recovered/Not Resolved]
